FAERS Safety Report 8764367 (Version 3)
Quarter: 2012Q4

REPORT INFORMATION
  Report Type: 
  Country: NO (occurrence: NO)
  Receive Date: 20120831
  Receipt Date: 20121127
  Transmission Date: 20130627
  Serious: Yes (Other)
  Sender: FDA-Public Use
  Company Number: PHHY2012NO073395

PATIENT
  Age: 55 Year
  Sex: Male

DRUGS (6)
  1. ESOMEPRAZOLE [Suspect]
     Indication: GASTROOESOPHAGEAL REFLUX DISEASE
     Dosage: 40 mg, daily
  2. LANSOPRAZOLE [Suspect]
     Indication: GASTROOESOPHAGEAL REFLUX DISEASE
     Dosage: 30 mg, daily
  3. LISINOPRIL [Concomitant]
     Indication: HYPERTENSION
     Dosage: 40 mg, daily
  4. IRBESARTAN [Concomitant]
     Dosage: 30 mg, daily
  5. AMLODIPINE [Concomitant]
     Dosage: 10 mg, daily
  6. ACETYLSALICYLIC ACID [Concomitant]
     Dosage: 160 mg, daily

REACTIONS (5)
  - Carcinoid tumour of the stomach [Recovered/Resolved]
  - Neuroendocrine tumour [Recovered/Resolved]
  - Hypergastrinaemia [Unknown]
  - Hyperchlorhydria [Recovered/Resolved]
  - Enterochromaffin cell hyperplasia [Recovered/Resolved]
